FAERS Safety Report 13390982 (Version 1)
Quarter: 2017Q1

REPORT INFORMATION
  Report Type: Spontaneous
  Country: US (occurrence: US)
  Receive Date: 20170331
  Receipt Date: 20170331
  Transmission Date: 20170429
  Serious: Yes (Life-Threatening, Hospitalization, Disabling)
  Sender: FDA-Public Use
  Company Number: None

PATIENT
  Age: 42 Year
  Sex: Female
  Weight: 97.07 kg

DRUGS (8)
  1. RESPIRDONE [Concomitant]
  2. SYNTHROID [Concomitant]
     Active Substance: LEVOTHYROXINE SODIUM
  3. VALTREX [Suspect]
     Active Substance: VALACYCLOVIR HYDROCHLORIDE
     Indication: ANOGENITAL WARTS
     Dosage: 1 PILL EVERYDAY MOUTH
     Route: 048
  4. LOPERAMIDE [Suspect]
     Active Substance: LOPERAMIDE
     Indication: AFFECTIVE DISORDER
     Dosage: 2 PILLS EVERYDAY MOUTH
     Route: 048
     Dates: start: 20161225
  5. TAMIFLU [Suspect]
     Active Substance: OSELTAMIVIR PHOSPHATE
     Indication: INFLUENZA
     Dosage: 1 PILL ONE MOUTH
     Route: 048
  6. PROTONIX [Concomitant]
     Active Substance: PANTOPRAZOLE SODIUM
  7. ATIVAN [Concomitant]
     Active Substance: LORAZEPAM
  8. ZYPREXA [Concomitant]
     Active Substance: OLANZAPINE

REACTIONS (6)
  - Abdominal pain upper [None]
  - Dyspnoea [None]
  - Crying [None]
  - Fall [None]
  - Tremor [None]
  - Headache [None]

NARRATIVE: CASE EVENT DATE: 20170303
